FAERS Safety Report 8992270 (Version 1)
Quarter: 2013Q1

REPORT INFORMATION
  Report Type: Report from Study
  Country: CO (occurrence: CO)
  Receive Date: 20130101
  Receipt Date: 20130101
  Transmission Date: 20140127
  Serious: Yes (Other)
  Sender: FDA-Public Use
  Company Number: CO-AMGEN-COLCT2011005619

PATIENT
  Age: 67 Year
  Sex: Male

DRUGS (4)
  1. ETANERCEPT [Suspect]
     Indication: RHEUMATOID ARTHRITIS
     Dosage: 50 MG, WEEKLY
     Route: 058
     Dates: start: 2007, end: 201206
  2. MEDROL                             /00049601/ [Suspect]
     Indication: RHEUMATOID ARTHRITIS
     Dosage: 2 MG, 1X/DAY BEFORE
     Route: 048
     Dates: start: 2004
  3. GLUCOVANCE [Concomitant]
     Dosage: [500 , 5], UNK
     Route: 048
  4. METHOTREXATE [Concomitant]
     Indication: RHEUMATOID ARTHRITIS
     Dosage: TWO TABLETS
     Route: 048
     Dates: start: 2007

REACTIONS (4)
  - Diabetes mellitus [Recovered/Resolved]
  - Immune system disorder [Unknown]
  - Sinusitis [Recovered/Resolved]
  - Pharyngitis [Recovered/Resolved]
